FAERS Safety Report 23583646 (Version 1)
Quarter: 2024Q1

REPORT INFORMATION
  Report Type: Spontaneous
  Country: GB (occurrence: GB)
  Receive Date: 20240301
  Receipt Date: 20240301
  Transmission Date: 20240409
  Serious: No
  Sender: FDA-Public Use
  Company Number: None

PATIENT
  Age: 90 Year
  Sex: Male
  Weight: 85 kg

DRUGS (13)
  1. FINASTERIDE [Suspect]
     Active Substance: FINASTERIDE
     Indication: Product used for unknown indication
     Dosage: 5 MILLIGRAM, QD, TABLET
     Route: 065
     Dates: start: 20231017, end: 20231110
  2. AMITRIPTYLINE HYDROCHLORIDE [Concomitant]
     Active Substance: AMITRIPTYLINE HYDROCHLORIDE
     Indication: Sleep disorder
     Dosage: 2 DOSAGE FORM, HS (TAKE TWO TABLET AT NIGHT FOR SLEEP/HEADACHE AS)
     Route: 065
     Dates: start: 20230825
  3. AMITRIPTYLINE HYDROCHLORIDE [Concomitant]
     Active Substance: AMITRIPTYLINE HYDROCHLORIDE
     Indication: Headache
  4. ATORVASTATIN [Concomitant]
     Active Substance: ATORVASTATIN
     Indication: Blood cholesterol
     Dosage: 1 DOSAGE FORM, QD (TAKE ONE TABLET DAILY TO LOWER CHOLESTEROL)
     Route: 065
     Dates: start: 20221019
  5. BISOPROLOL [Concomitant]
     Active Substance: BISOPROLOL\BISOPROLOL FUMARATE
     Indication: Product used for unknown indication
     Dosage: 1 DOSAGE FORM, QD (TAKE ONE TABLETS IN THE MORNING)
     Route: 065
     Dates: start: 20220901
  6. EDOXABAN [Concomitant]
     Active Substance: EDOXABAN
     Indication: Product used for unknown indication
     Dosage: 1 DOSAGE FORM, QD (TAKE ONE TABLET DAILY)
     Route: 065
     Dates: start: 20230510
  7. FEXOFENADINE [Concomitant]
     Active Substance: FEXOFENADINE HYDROCHLORIDE
     Indication: Product used for unknown indication
     Dosage: UNK, QD (TAKE ONE DAILY)
     Route: 065
     Dates: start: 20231110, end: 20231210
  8. LACTULOSE [Concomitant]
     Active Substance: LACTULOSE
     Indication: Product used for unknown indication
     Dosage: UNK, 10ML TO 15ML WITH WATER TWICE A DAY WHEN REQUIRED
     Route: 065
     Dates: start: 20230417
  9. METFORMIN [Concomitant]
     Active Substance: METFORMIN HYDROCHLORIDE
     Indication: Product used for unknown indication
     Dosage: 1 DOSAGE FORM, BID (TAKE ONE TABLET TWICE A DAY)
     Route: 065
     Dates: start: 20220901
  10. MIRABEGRON [Concomitant]
     Active Substance: MIRABEGRON
     Indication: Product used for unknown indication
     Dosage: UNK, QD (TAKE ONE DAILY)
     Route: 065
     Dates: start: 20230227
  11. ACETAMINOPHEN [Concomitant]
     Active Substance: ACETAMINOPHEN
     Indication: Product used for unknown indication
     Dosage: UNK (TAKE ONE TO TWO TABLETS UP TO FOUR TIMES A DAY)
     Route: 065
     Dates: start: 20220901
  12. RAMIPRIL [Concomitant]
     Active Substance: RAMIPRIL
     Indication: Product used for unknown indication
     Dosage: UNK, QD (TAKE ONE DAILY)
     Route: 065
     Dates: start: 20230510
  13. TRIMETHOPRIM [Concomitant]
     Active Substance: TRIMETHOPRIM
     Indication: Urine abnormality
     Dosage: UNK, BID (TAKE ONE TWICE DAILY FOR7 DAYS, TO TREAT URINE ...)
     Route: 065
     Dates: start: 20230914, end: 20230921

REACTIONS (1)
  - Dermatitis [Recovering/Resolving]
